FAERS Safety Report 6696107-9 (Version None)
Quarter: 2010Q2

REPORT INFORMATION
  Report Type: 
  Country: None (occurrence: None)
  Receive Date: 20100426
  Receipt Date: 20100414
  Transmission Date: 20101027
  Serious: Yes (Other)
  Sender: FDA-Public Use
  Company Number: PHHY2010AT23645

PATIENT
  Age: 58 Year
  Sex: Female

DRUGS (2)
  1. RASILEZ HCT [Suspect]
     Indication: HYPERTENSION
     Dosage: 300/12.5 MG
  2. RILMENIDINE [Concomitant]
     Dosage: 1 MG, UNK

REACTIONS (1)
  - BLOOD PRESSURE INCREASED [None]
